FAERS Safety Report 10226509 (Version 1)
Quarter: 2014Q2

REPORT INFORMATION
  Report Type: Spontaneous
  Country: US (occurrence: US)
  Receive Date: 20140609
  Receipt Date: 20140609
  Transmission Date: 20141212
  Serious: No
  Sender: FDA-Public Use
  Company Number: US-AMGEN INC.-USASP2013058460

PATIENT
  Age: 51 Year
  Sex: Female
  Weight: 81.63 kg

DRUGS (1)
  1. PROCRIT [Suspect]
     Indication: RENAL FAILURE CHRONIC
     Dosage: 20000 UNIT, UNK
     Route: 065
     Dates: start: 201108, end: 201111

REACTIONS (1)
  - Haemoglobin decreased [Not Recovered/Not Resolved]
